FAERS Safety Report 23950186 (Version 1)
Quarter: 2024Q2

REPORT INFORMATION
  Report Type: Spontaneous
  Country: LV (occurrence: LV)
  Receive Date: 20240607
  Receipt Date: 20240607
  Transmission Date: 20240716
  Serious: Yes (Hospitalization)
  Sender: FDA-Public Use
  Company Number: LV-MYLANLABS-2024M1050471

PATIENT
  Age: 26 Year
  Sex: Male

DRUGS (8)
  1. LATANOPROST [Suspect]
     Active Substance: LATANOPROST
     Indication: Eales^ disease
     Dosage: UNK; STARTED INSTILLING BOTH EYES; DROPS
     Route: 047
  2. CELLCEPT [Suspect]
     Active Substance: MYCOPHENOLATE MOFETIL
     Indication: Eales^ disease
     Dosage: 2 GRAM, QD
     Route: 065
  3. AVASTIN [Suspect]
     Active Substance: BEVACIZUMAB
     Indication: Eales^ disease
     Dosage: UNK; RECEIVED A TOTAL OF 12 INJECTIONS IN BOTH EYES
     Route: 047
  4. METHYLPREDNISOLONE [Suspect]
     Active Substance: METHYLPREDNISOLONE
     Indication: Eales^ disease
     Dosage: UNK
     Route: 042
  5. METHYLPREDNISOLONE [Suspect]
     Active Substance: METHYLPREDNISOLONE
     Indication: Eales^ disease
     Dosage: 32 MILLIGRAM, QD
     Route: 048
  6. AZATHIOPRINE [Suspect]
     Active Substance: AZATHIOPRINE
     Indication: Eales^ disease
     Dosage: 150 MILLIGRAM, QD
     Route: 065
  7. COSOPT [Suspect]
     Active Substance: DORZOLAMIDE HYDROCHLORIDE\TIMOLOL MALEATE
     Indication: Eales^ disease
     Dosage: UNK; DROPS, STARTED INSTILLING BOTH EYES
     Route: 047
  8. BRIMONIDINE [Suspect]
     Active Substance: BRIMONIDINE TARTRATE
     Indication: Eales^ disease
     Dosage: UNK; DROPS, STARTED INSTILLING BOTH EYES
     Route: 047

REACTIONS (2)
  - Drug ineffective for unapproved indication [Unknown]
  - Off label use [Unknown]
